FAERS Safety Report 12051292 (Version 1)
Quarter: 2016Q1

REPORT INFORMATION
  Report Type: Spontaneous
  Country: US (occurrence: None)
  Receive Date: 20160208
  Receipt Date: 20160208
  Transmission Date: 20160526
  Serious: Yes (Other)
  Sender: FDA-Public Use
  Company Number: None

PATIENT
  Age: 54 Year
  Sex: Female

DRUGS (1)
  1. HUMIRA [Suspect]
     Active Substance: ADALIMUMAB
     Indication: UVEITIS
     Route: 058
     Dates: start: 20151103, end: 20160103

REACTIONS (3)
  - Ocular rosacea [None]
  - Injection site reaction [None]
  - Blood pressure increased [None]

NARRATIVE: CASE EVENT DATE: 20160204
